FAERS Safety Report 23626189 (Version 1)
Quarter: 2024Q1

REPORT INFORMATION
  Report Type: Other
  Country: US (occurrence: US)
  Receive Date: 20240313
  Receipt Date: 20240313
  Transmission Date: 20240409
  Serious: Yes (Hospitalization)
  Sender: FDA-Public Use
  Company Number: US-ALSI-2024000086

PATIENT
  Age: 33 Year
  Sex: Female

DRUGS (1)
  1. NITROUS OXIDE [Suspect]
     Active Substance: NITROUS OXIDE
     Route: 055

REACTIONS (3)
  - Neuropathy peripheral [Recovered/Resolved]
  - Vitamin B12 deficiency [Recovered/Resolved]
  - Myelopathy [Recovered/Resolved]
